APPROVED DRUG PRODUCT: TACROLIMUS
Active Ingredient: TACROLIMUS
Strength: EQ 0.5MG BASE
Dosage Form/Route: CAPSULE, EXTENDED RELEASE;ORAL
Application: A215012 | Product #001 | TE Code: AB
Applicant: CHENGDU SUNCADIA MEDICINE CO LTD
Approved: Jan 25, 2024 | RLD: No | RS: No | Type: RX